FAERS Safety Report 14508486 (Version 2)
Quarter: 2018Q1

REPORT INFORMATION
  Report Type: Report from Study
  Country: FR (occurrence: FR)
  Receive Date: 20180209
  Receipt Date: 20180306
  Transmission Date: 20180509
  Serious: Yes (Hospitalization, Other)
  Sender: FDA-Public Use
  Company Number: FR-BRISTOL-MYERS SQUIBB COMPANY-BMS-2017-101613

PATIENT
  Age: 75 Year
  Sex: Male

DRUGS (5)
  1. NEBIVOLOL. [Concomitant]
     Active Substance: NEBIVOLOL
     Indication: PRODUCT USED FOR UNKNOWN INDICATION
     Dosage: UNK UNK, QD
     Route: 065
  2. CRESTOR [Concomitant]
     Active Substance: ROSUVASTATIN CALCIUM
     Indication: PRODUCT USED FOR UNKNOWN INDICATION
     Route: 065
  3. NIVOLUMAB [Suspect]
     Active Substance: NIVOLUMAB
     Indication: LUNG NEOPLASM MALIGNANT
     Dosage: 230 MG, Q2WK
     Route: 042
     Dates: start: 20170905, end: 20171110
  4. ASPIRINE PROTECT [Concomitant]
     Active Substance: ASPIRIN
     Indication: PRODUCT USED FOR UNKNOWN INDICATION
     Route: 065
  5. PERINDOPRIL [Concomitant]
     Active Substance: PERINDOPRIL
     Indication: PRODUCT USED FOR UNKNOWN INDICATION
     Dosage: UNK MG, UNK
     Route: 065

REACTIONS (24)
  - Oedema [Unknown]
  - Aspergillus infection [Recovering/Resolving]
  - Thrombophlebitis [Unknown]
  - Device related infection [Unknown]
  - Blood creatinine increased [Unknown]
  - Lung abscess [Recovering/Resolving]
  - Dysphagia [Unknown]
  - Nausea [Unknown]
  - Vomiting [Unknown]
  - Increased bronchial secretion [Unknown]
  - Tumour associated fever [Recovered/Resolved]
  - Pain in extremity [Unknown]
  - Haemoglobinaemia [Unknown]
  - Pneumonia aspiration [Unknown]
  - General physical health deterioration [Unknown]
  - Candida infection [Unknown]
  - Cough [Unknown]
  - Atypical mycobacterial infection [Recovering/Resolving]
  - Staphylococcal infection [Unknown]
  - Bacterial infection [Unknown]
  - Weight decreased [Unknown]
  - Diarrhoea [Recovered/Resolved]
  - Pain [Unknown]
  - Decreased appetite [Unknown]

NARRATIVE: CASE EVENT DATE: 20170905
